FAERS Safety Report 8581997-5 (Version None)
Quarter: 2012Q3

REPORT INFORMATION
  Report Type: 
  Country: None (occurrence: None)
  Receive Date: 20120809
  Receipt Date: 20120802
  Transmission Date: 20120928
  Serious: Yes (Hospitalization)
  Sender: FDA-Public Use
  Company Number: US-B.I. PHARMACEUTICALS,INC./RIDGEFIELD-2012-BP-17459BP

PATIENT
  Age: 92 Year
  Sex: Male
  Weight: 62 kg

DRUGS (1)
  1. PRADAXA [Suspect]
     Dosage: 150 MG
     Route: 048
     Dates: end: 20120101

REACTIONS (1)
  - GASTROINTESTINAL HAEMORRHAGE [None]
